FAERS Safety Report 6564747-3 (Version None)
Quarter: 2010Q1

REPORT INFORMATION
  Report Type: 
  Country: None (occurrence: None)
  Receive Date: 20100201
  Receipt Date: 20100112
  Transmission Date: 20100710
  Serious: Yes (Death, Hospitalization)
  Sender: FDA-Public Use
  Company Number: PHHY2010NL00803

PATIENT
  Sex: Male
  Weight: 105 kg

DRUGS (11)
  1. ALISKIREN ALI+TAB [Suspect]
     Indication: HYPERTENSION
     Dosage: 150 MG DAILY
     Route: 048
     Dates: start: 20081209
  2. ASPIRIN AND DIPYRIDAMOLE [Concomitant]
     Dosage: 25/200 2X1
  3. FUROSEMIDE [Concomitant]
     Dosage: 1X80
  4. ATACAND [Concomitant]
     Dosage: 1X16 MG
  5. OMEPRAZOL [Concomitant]
     Dosage: 1X40 MG
  6. ISDN [Concomitant]
     Dosage: 1X50 MG
  7. ACTOS [Concomitant]
     Dosage: 1X30 MG
  8. ACETYLCYSTEINE [Concomitant]
     Dosage: 1X600 MG
  9. METFORMIN [Concomitant]
     Dosage: 1X250 MG
  10. SELOKEEN ZOC [Concomitant]
     Dosage: 1X100 MG
  11. CRESTOR [Concomitant]
     Dosage: 1X10 MG

REACTIONS (3)
  - ATRIAL FIBRILLATION [None]
  - BLOOD PRESSURE INCREASED [None]
  - CEREBROVASCULAR ACCIDENT [None]
